FAERS Safety Report 19023024 (Version 6)
Quarter: 2021Q2

REPORT INFORMATION
  Report Type: Report from Study
  Country: CL (occurrence: CL)
  Receive Date: 20210317
  Receipt Date: 20210413
  Transmission Date: 20210717
  Serious: Yes (Death, Hospitalization)
  Sender: FDA-Public Use
  Company Number: CL-EISAI MEDICAL RESEARCH-EC-2021-089773

PATIENT
  Age: 58 Year
  Sex: Female
  Weight: 70 kg

DRUGS (18)
  1. LENVATINIB [Suspect]
     Active Substance: LENVATINIB
     Indication: NON-SMALL CELL LUNG CANCER METASTATIC
     Route: 048
     Dates: start: 20200814, end: 20210309
  2. CLOFEXAN [Concomitant]
     Dates: start: 202004
  3. CHLORPHENIRAMINE. [Concomitant]
     Active Substance: CHLORPHENIRAMINE
     Dates: start: 20210105
  4. LORATADINE. [Concomitant]
     Active Substance: LORATADINE
     Dates: start: 20210105
  5. PEMETREXED. [Suspect]
     Active Substance: PEMETREXED
     Route: 042
     Dates: start: 20210217, end: 20210217
  6. CARBOPLATIN. [Concomitant]
     Active Substance: CARBOPLATIN
     Dates: start: 20200814, end: 20201028
  7. FILGRASTIM [Concomitant]
     Active Substance: FILGRASTIM
     Dates: start: 20200910
  8. PEMBROLIZUMAB. [Suspect]
     Active Substance: PEMBROLIZUMAB
     Route: 042
     Dates: start: 20210217, end: 20210217
  9. PEMETREXED. [Suspect]
     Active Substance: PEMETREXED
     Indication: NON-SMALL CELL LUNG CANCER METASTATIC
     Route: 042
     Dates: start: 20200814, end: 20210127
  10. ACENOCOUMAROL [Concomitant]
     Active Substance: ACENOCOUMAROL
     Dates: start: 202004
  11. ELCAL D [Concomitant]
     Active Substance: CALCIUM CARBONATE\CHOLECALCIFEROL
     Dates: start: 202004
  12. FOLIC ACID. [Concomitant]
     Active Substance: FOLIC ACID
     Dates: start: 20200723
  13. PEMBROLIZUMAB. [Suspect]
     Active Substance: PEMBROLIZUMAB
     Indication: NON-SMALL CELL LUNG CANCER METASTATIC
     Route: 042
     Dates: start: 20200814, end: 20210127
  14. IPRATROPIUM BROMIDE. [Concomitant]
     Active Substance: IPRATROPIUM BROMIDE
     Dates: start: 202004
  15. CYANOCOBALAMIN. [Concomitant]
     Active Substance: CYANOCOBALAMIN
     Dates: start: 20200803
  16. BREXOTIDE [Concomitant]
     Active Substance: FLUTICASONE PROPIONATE\SALMETEROL XINAFOATE
     Dates: start: 20210105
  17. BERODUAL [Concomitant]
     Active Substance: FENOTEROL HYDROBROMIDE\IPRATROPIUM BROMIDE
     Dates: start: 20210105
  18. ACETAMINOPHEN. [Concomitant]
     Active Substance: ACETAMINOPHEN
     Dates: start: 20210215

REACTIONS (1)
  - Pericardial effusion [Fatal]

NARRATIVE: CASE EVENT DATE: 20210309
